FAERS Safety Report 16174741 (Version 2)
Quarter: 2019Q2

REPORT INFORMATION
  Report Type: Spontaneous
  Country: US (occurrence: US)
  Receive Date: 20190409
  Receipt Date: 20190517
  Transmission Date: 20190711
  Serious: Yes (Hospitalization)
  Sender: FDA-Public Use
  Company Number: US-ASTRAZENECA-2019SE52609

PATIENT
  Age: 31249 Day
  Sex: Female
  Weight: 76.7 kg

DRUGS (3)
  1. SYMBICORT [Suspect]
     Active Substance: BUDESONIDE\FORMOTEROL FUMARATE DIHYDRATE
     Indication: CHRONIC OBSTRUCTIVE PULMONARY DISEASE
     Dosage: 160/4.5 MCG TWO PUFFS TWO TIMES A DAY
     Route: 055
  2. SYMBICORT [Suspect]
     Active Substance: BUDESONIDE\FORMOTEROL FUMARATE DIHYDRATE
     Indication: CHRONIC OBSTRUCTIVE PULMONARY DISEASE
     Dosage: DAILY
     Route: 055
  3. ALBUTEROL. [Concomitant]
     Active Substance: ALBUTEROL
     Dosage: AS REQUIRED

REACTIONS (9)
  - Dyspnoea [Unknown]
  - Product dose omission [Unknown]
  - Intentional device misuse [Unknown]
  - Productive cough [Unknown]
  - Wrong technique in device usage process [Unknown]
  - Insomnia [Unknown]
  - Circumstance or information capable of leading to medication error [Unknown]
  - Cough [Unknown]
  - Device failure [Unknown]

NARRATIVE: CASE EVENT DATE: 20190306
